FAERS Safety Report 22668278 (Version 2)
Quarter: 2023Q4

REPORT INFORMATION
  Report Type: Spontaneous
  Country: US (occurrence: US)
  Receive Date: 20230704
  Receipt Date: 20231211
  Transmission Date: 20240110
  Serious: Yes (Other)
  Sender: FDA-Public Use
  Company Number: US-JNJFOC-20230665586

PATIENT
  Age: 3 Year
  Sex: Male

DRUGS (4)
  1. TYLENOL REGULAR STRENGTH [Suspect]
     Active Substance: ACETAMINOPHEN
     Indication: Headache
     Dosage: THREE TO FIVE TIMES PER WEEK    ? ?TRIMESTER: FIRST
     Route: 064
     Dates: start: 199606, end: 199708
  2. TYLENOL REGULAR STRENGTH [Suspect]
     Active Substance: ACETAMINOPHEN
     Dosage: THREE TO FIVE TIMES PER WEEK  ??TRIMESTER: SECOND
     Route: 064
     Dates: start: 199608, end: 199611
  3. TYLENOL REGULAR STRENGTH [Suspect]
     Active Substance: ACETAMINOPHEN
     Dosage: THREE TO FIVE TIMES PER WEEK  ?TRIMESTER: THIRD
     Route: 064
     Dates: start: 199611, end: 199701
  4. DIHYDROXYALUMINUM SODIUM CARBONATE [Concomitant]
     Active Substance: DIHYDROXYALUMINUM SODIUM CARBONATE
     Indication: Dyspepsia
     Dosage: 1-2 TABLETS. A FEW TIMES PER WEEK THROUGHOUT PREGNANCY
     Route: 065
     Dates: start: 199604, end: 199701

REACTIONS (3)
  - Autism spectrum disorder [Unknown]
  - Foetal exposure during pregnancy [Unknown]
  - Attention deficit hyperactivity disorder [Unknown]

NARRATIVE: CASE EVENT DATE: 20000601
